FAERS Safety Report 21756885 (Version 1)
Quarter: 2022Q4

REPORT INFORMATION
  Report Type: Spontaneous
  Country: FR (occurrence: None)
  Receive Date: 20221220
  Receipt Date: 20221220
  Transmission Date: 20230113
  Serious: Yes (Hospitalization)
  Sender: FDA-Public Use
  Company Number: 2022A401953

PATIENT
  Age: 91 Year
  Sex: Female
  Weight: 70 kg

DRUGS (10)
  1. OMEPRAZOLE [Suspect]
     Active Substance: OMEPRAZOLE
     Route: 048
     Dates: end: 20221028
  2. SPIRONOLACTONE [Suspect]
     Active Substance: SPIRONOLACTONE
     Route: 048
     Dates: end: 20221028
  3. TOVIAZ [Suspect]
     Active Substance: FESOTERODINE FUMARATE
     Route: 048
     Dates: end: 20221027
  4. HYDROCHLOROTHIAZIDE [Suspect]
     Active Substance: HYDROCHLOROTHIAZIDE
     Route: 048
     Dates: end: 20221028
  5. POLYETHYLENE GLYCOLS [Suspect]
     Active Substance: POLYETHYLENE GLYCOLS
     Route: 048
     Dates: end: 20221028
  6. ETIFOXINE [Suspect]
     Active Substance: ETIFOXINE
     Route: 048
     Dates: end: 20221028
  7. BILASTINE [Suspect]
     Active Substance: BILASTINE
     Route: 048
     Dates: end: 20221028
  8. POLYETHYLENE GLYCOLS [Suspect]
     Active Substance: POLYETHYLENE GLYCOLS
     Route: 048
     Dates: end: 20221028
  9. DOLIPRANE [Concomitant]
     Active Substance: ACETAMINOPHEN
  10. ERGOCALCIFEROL [Concomitant]
     Active Substance: ERGOCALCIFEROL

REACTIONS (1)
  - Urinary retention [Recovered/Resolved]

NARRATIVE: CASE EVENT DATE: 20221027
